FAERS Safety Report 18120910 (Version 7)
Quarter: 2021Q2

REPORT INFORMATION
  Report Type: Spontaneous
  Country: JP (occurrence: JP)
  Receive Date: 20200806
  Receipt Date: 20210405
  Transmission Date: 20210717
  Serious: Yes (Death, Hospitalization)
  Sender: FDA-Public Use
  Company Number: JP-ASTRAZENECA-2019SE90141

PATIENT
  Age: 91 Year
  Sex: Male

DRUGS (10)
  1. TAGRISSO [Suspect]
     Active Substance: OSIMERTINIB
     Indication: NON-SMALL CELL LUNG CANCER
     Route: 048
     Dates: start: 20190517, end: 20200917
  2. PRAVASTATIN NA [Concomitant]
     Active Substance: PRAVASTATIN SODIUM
     Indication: DYSLIPIDAEMIA
     Route: 048
  3. HIRUDOID [Suspect]
     Active Substance: GLYCOSAMINOGLYCANS
     Indication: RASH
     Dosage: OPTIMAL DOSE, SEVERAL TIMES/DAY, DOSE UNKNOWN
     Route: 062
  4. LOCOID [Concomitant]
     Active Substance: HYDROCORTISONE BUTYRATE
     Indication: RASH
     Dosage: OPTIMAL DOSE, ONE TO SEVERAL TIMES, DOSE UNKNOWN
     Route: 062
  5. CELECOX [Concomitant]
     Active Substance: CELECOXIB
     Indication: OSTEOARTHRITIS
     Route: 048
  6. CLOPIDOGREL [Concomitant]
     Active Substance: CLOPIDOGREL BISULFATE
     Indication: CAROTID ARTERY STENOSIS
     Route: 048
  7. STIBRON [Concomitant]
     Indication: RASH
     Dosage: OPTIMAL DOSE, ONE TO SEVERAL TIMES, DOSE UNKNOWN
     Route: 062
  8. MIYA?BM [Concomitant]
     Active Substance: CLOSTRIDIUM BUTYRICUM SPORES STRAIN M-55
     Indication: DIARRHOEA
     Route: 048
     Dates: start: 20190517
  9. TELMISARTAN OD [Concomitant]
     Active Substance: TELMISARTAN
     Indication: HYPERTENSION
     Route: 048
  10. REBAMIPIDE [Concomitant]
     Active Substance: REBAMIPIDE
     Indication: CHRONIC GASTRITIS
     Route: 048

REACTIONS (5)
  - Candida sepsis [Fatal]
  - Chondrocalcinosis pyrophosphate [Recovering/Resolving]
  - Herpes zoster [Recovering/Resolving]
  - Drug eruption [Recovered/Resolved]
  - Severe invasive streptococcal infection [Fatal]

NARRATIVE: CASE EVENT DATE: 20190521
